FAERS Safety Report 8243827-0 (Version None)
Quarter: 2012Q1

REPORT INFORMATION
  Report Type: 
  Country: None (occurrence: None)
  Receive Date: 20120329
  Receipt Date: 20120322
  Transmission Date: 20120608
  Serious: Yes (Other)
  Sender: FDA-Public Use
  Company Number: ES-PFIZER INC-2012074773

PATIENT
  Age: 33 Year
  Sex: Male

DRUGS (6)
  1. VFEND [Suspect]
     Indication: ANTIFUNGAL PROPHYLAXIS
     Dosage: 200 MG, 2X/DAY
     Route: 048
     Dates: start: 20120211, end: 20120214
  2. VESANOID [Suspect]
     Indication: ACUTE LEUKAEMIA
     Dosage: 90 MG
     Route: 048
     Dates: start: 20120209
  3. LORAZEPAM [Concomitant]
     Indication: ANXIETY
     Dosage: 1 MG, 1X/DAY
     Route: 048
     Dates: start: 20120209
  4. ALLOPURINOL [Concomitant]
     Indication: BLOOD URIC ACID INCREASED
     Dosage: 300 MG, 2X/DAY
     Route: 048
     Dates: start: 20120209
  5. TARGOCID [Concomitant]
     Indication: ANTIBIOTIC PROPHYLAXIS
     Dosage: 400 MG, UNK
     Dates: start: 20120211
  6. VALTREX [Suspect]
     Indication: ANTIVIRAL PROPHYLAXIS
     Dosage: 500 MG, 2X/DAY
     Route: 048
     Dates: start: 20120211

REACTIONS (2)
  - BLOOD LACTATE DEHYDROGENASE INCREASED [None]
  - TRANSAMINASES INCREASED [None]
